FAERS Safety Report 12365991 (Version 3)
Quarter: 2016Q3

REPORT INFORMATION
  Report Type: Spontaneous
  Country: US (occurrence: US)
  Receive Date: 20160513
  Receipt Date: 20160729
  Transmission Date: 20161109
  Serious: Yes (Other)
  Sender: FDA-Public Use
  Company Number: US-TEVA-658597ACC

PATIENT
  Age: 27 Year
  Sex: Female

DRUGS (4)
  1. VITAMIN D [Concomitant]
     Active Substance: CHOLECALCIFEROL
  2. PROBIOTICS [Concomitant]
     Active Substance: PROBIOTICS NOS
     Dates: start: 2008
  3. PARAGARD T 380A [Suspect]
     Active Substance: COPPER
     Indication: CONTRACEPTION
     Dates: start: 20080820
  4. BACTRIM [Concomitant]
     Active Substance: SULFAMETHOXAZOLE\TRIMETHOPRIM

REACTIONS (4)
  - Device dislocation [Recovered/Resolved]
  - Device breakage [Recovered/Resolved]
  - Embedded device [Recovered/Resolved]
  - Menorrhagia [Unknown]

NARRATIVE: CASE EVENT DATE: 20160223
